FAERS Safety Report 9178311 (Version 1)
Quarter: 2012Q4

REPORT INFORMATION
  Report Type: 
  Country: US (occurrence: US)
  Receive Date: 20121029
  Receipt Date: 20121029
  Transmission Date: 20130627
  Serious: No
  Sender: FDA-Public Use
  Company Number: US-009507513-1210USA011183

PATIENT

DRUGS (2)
  1. NASONEX [Suspect]
     Indication: ASTHMA
     Dosage: 2 sprays each nostril morning and evening
  2. OMEGA-3 MARINE TRIGLYCERIDES [Concomitant]
     Indication: ASTHMA

REACTIONS (2)
  - Nasal congestion [Unknown]
  - Inappropriate schedule of drug administration [Unknown]
